FAERS Safety Report 5847033-6 (Version None)
Quarter: 2008Q3

REPORT INFORMATION
  Report Type: 
  Country: None (occurrence: None)
  Receive Date: 20080815
  Receipt Date: 20080806
  Transmission Date: 20090109
  Serious: Yes (Other)
  Sender: FDA-Public Use
  Company Number: AT-ABBOTT-08P-009-0458321-00

PATIENT
  Age: 53 Year
  Sex: Male

DRUGS (11)
  1. DEPAKENE [Suspect]
     Indication: DRUG USE FOR UNKNOWN INDICATION
     Route: 048
     Dates: start: 20080219, end: 20080320
  2. DEPAKENE [Suspect]
     Route: 048
     Dates: start: 20080321, end: 20080412
  3. DEPAKENE [Suspect]
     Route: 048
     Dates: start: 20080413, end: 20080413
  4. DEPAKENE [Suspect]
     Route: 048
     Dates: start: 20080414, end: 20080415
  5. DEPAKENE [Suspect]
     Route: 048
     Dates: start: 20080416, end: 20080417
  6. CITALOPRAM HYDROBROMIDE [Interacting]
     Indication: DRUG USE FOR UNKNOWN INDICATION
     Route: 048
     Dates: end: 20080411
  7. METOPROLOL TARTRATE [Suspect]
     Indication: DRUG USE FOR UNKNOWN INDICATION
     Route: 048
  8. METOPROLOL SUCCINATE [Concomitant]
     Indication: DRUG USE FOR UNKNOWN INDICATION
     Route: 048
  9. QUETIAPINE FUMARATE [Concomitant]
     Indication: DRUG USE FOR UNKNOWN INDICATION
     Route: 048
     Dates: start: 20080412, end: 20080412
  10. QUETIAPINE FUMARATE [Concomitant]
     Route: 048
     Dates: start: 20080413, end: 20080422
  11. OLANZAPINE [Concomitant]
     Indication: DRUG USE FOR UNKNOWN INDICATION
     Route: 048
     Dates: start: 20070101, end: 20080411

REACTIONS (2)
  - DRUG INTERACTION [None]
  - HYPONATRAEMIA [None]
